FAERS Safety Report 13280622 (Version 1)
Quarter: 2017Q1

REPORT INFORMATION
  Report Type: Spontaneous
  Country: FR (occurrence: FR)
  Receive Date: 20170301
  Receipt Date: 20170301
  Transmission Date: 20170428
  Serious: Yes (Death)
  Sender: FDA-Public Use
  Company Number: FR-ROCHE-1900035

PATIENT
  Age: 71 Year
  Sex: Male

DRUGS (9)
  1. NORADRENALIN [Concomitant]
     Active Substance: NOREPINEPHRINE\NOREPINEPHRINE BITARTRATE
  2. PREDNISOLONE. [Concomitant]
     Active Substance: PREDNISOLONE
     Indication: PRIMARY MEDIASTINAL LARGE B-CELL LYMPHOMA
     Dosage: 4 CYCLES OF R-CHOP
     Route: 065
  3. MABTHERA [Suspect]
     Active Substance: RITUXIMAB
     Indication: PRIMARY MEDIASTINAL LARGE B-CELL LYMPHOMA
     Dosage: RECEIVED 4 CYCLES OF R-CHOP AND 2 CYCLES OF RITUXIMAB?DATE OF LAST RITUXIMAB CYCLE 19/APR/2016
     Route: 065
     Dates: end: 20161003
  4. CYCLOPHOSPHAMIDE. [Concomitant]
     Active Substance: CYCLOPHOSPHAMIDE
     Indication: PRIMARY MEDIASTINAL LARGE B-CELL LYMPHOMA
     Dosage: 4 CYCLES OF R-CHOP
     Route: 065
  5. CYTARABINE EBEWE [Suspect]
     Active Substance: CYTARABINE
     Indication: PRIMARY MEDIASTINAL LARGE B-CELL LYMPHOMA
     Route: 042
     Dates: start: 20160910, end: 20161003
  6. METHOTREXATE. [Suspect]
     Active Substance: METHOTREXATE
     Indication: PRIMARY MEDIASTINAL LARGE B-CELL LYMPHOMA
     Dosage: HIGH DOSE
     Route: 042
     Dates: start: 20160910, end: 20161003
  7. DOXORUBICIN [Concomitant]
     Active Substance: DOXORUBICIN
     Indication: PRIMARY MEDIASTINAL LARGE B-CELL LYMPHOMA
     Dosage: 4 CYCLES OF R-CHOP
     Route: 065
  8. VINCRISTINE [Concomitant]
     Active Substance: VINCRISTINE
     Indication: PRIMARY MEDIASTINAL LARGE B-CELL LYMPHOMA
     Dosage: 4 CYCLES OF R-CHOP
     Route: 065
  9. MABTHERA [Suspect]
     Active Substance: RITUXIMAB
     Dosage: SECOND LINE CHEMOTHERAPY
     Route: 065
     Dates: start: 20160910, end: 20161003

REACTIONS (4)
  - Chronic kidney disease [Fatal]
  - Multiple organ dysfunction syndrome [Fatal]
  - Septic shock [Fatal]
  - Bone marrow failure [Fatal]
